FAERS Safety Report 25170426 (Version 1)
Quarter: 2025Q2

REPORT INFORMATION
  Report Type: Spontaneous
  Country: BR (occurrence: BR)
  Receive Date: 20250408
  Receipt Date: 20250408
  Transmission Date: 20250717
  Serious: Yes (Other)
  Sender: NOVO NORDISK
  Company Number: BR-NOVOPROD-1400577

PATIENT
  Age: 60 Year
  Sex: Female

DRUGS (1)
  1. OZEMPIC [Suspect]
     Active Substance: SEMAGLUTIDE
     Indication: Product used for unknown indication
     Dates: start: 2022, end: 2024

REACTIONS (4)
  - Oesophageal hypomotility [Not Recovered/Not Resolved]
  - Raynaud^s phenomenon [Unknown]
  - Gastrointestinal disorder [Unknown]
  - Flatulence [Unknown]
